FAERS Safety Report 22532676 (Version 2)
Quarter: 2023Q2

REPORT INFORMATION
  Report Type: Spontaneous
  Country: US (occurrence: US)
  Receive Date: 20230607
  Receipt Date: 20230619
  Transmission Date: 20230721
  Serious: Yes (Death)
  Sender: FDA-Public Use
  Company Number: US-TEVA-2023-US-2893698

PATIENT

DRUGS (1)
  1. DIAZOXIDE [Suspect]
     Active Substance: DIAZOXIDE
     Indication: Hypoglycaemia neonatal
     Route: 065

REACTIONS (2)
  - Neonatal pulmonary hypertension [Fatal]
  - Pulmonary hypertensive crisis [Fatal]
